FAERS Safety Report 13821144 (Version 1)
Quarter: 2017Q3

REPORT INFORMATION
  Report Type: Spontaneous
  Country: JP (occurrence: JP)
  Receive Date: 20170801
  Receipt Date: 20170801
  Transmission Date: 20171127
  Serious: Yes (Other)
  Sender: FDA-Public Use
  Company Number: JP-SEBELA IRELAND LIMITED-2017SEB00353

PATIENT
  Age: 22 Month
  Sex: Female
  Weight: 11 kg

DRUGS (2)
  1. ATROPINE. [Suspect]
     Active Substance: ATROPINE
     Indication: BIOPSY BONE MARROW
     Dosage: 0.1 MG, UNK
     Route: 065
  2. MIDAZOLAM [Suspect]
     Active Substance: MIDAZOLAM HYDROCHLORIDE
     Indication: BIOPSY BONE MARROW
     Dosage: 2 MG, UNK
     Route: 065

REACTIONS (2)
  - Opsoclonus myoclonus [Recovered/Resolved]
  - Respiratory dyskinesia [Recovered/Resolved]
